FAERS Safety Report 22665837 (Version 3)
Quarter: 2024Q1

REPORT INFORMATION
  Report Type: Spontaneous
  Country: CA (occurrence: CA)
  Receive Date: 20230703
  Receipt Date: 20240227
  Transmission Date: 20240410
  Serious: Yes (Death, Life-Threatening, Hospitalization, Disabling, Other)
  Sender: FDA-Public Use
  Company Number: None

PATIENT

DRUGS (257)
  1. PERIOGARD [Suspect]
     Active Substance: CHLORHEXIDINE GLUCONATE
     Indication: Product used for unknown indication
     Dosage: UNK
     Route: 002
  2. PERIOGARD [Suspect]
     Active Substance: CHLORHEXIDINE GLUCONATE
     Dosage: UNK
     Route: 016
  3. PERIOGARD [Suspect]
     Active Substance: CHLORHEXIDINE GLUCONATE
     Dosage: UNK
     Route: 048
  4. CHLORHEXIDINE [Suspect]
     Active Substance: CHLORHEXIDINE\CHLORHEXIDINE GLUCONATE
     Indication: Product used for unknown indication
     Dosage: UNK
     Route: 048
  5. CHLORHEXIDINE [Suspect]
     Active Substance: CHLORHEXIDINE\CHLORHEXIDINE GLUCONATE
     Dosage: UNK
     Route: 002
  6. CHLORHEXIDINE [Suspect]
     Active Substance: CHLORHEXIDINE\CHLORHEXIDINE GLUCONATE
     Dosage: UNK
     Route: 065
  7. CHLORHEXIDINE [Suspect]
     Active Substance: CHLORHEXIDINE\CHLORHEXIDINE GLUCONATE
     Dosage: UNK
     Route: 061
  8. MYCOPHENOLATE MOFETIL [Suspect]
     Active Substance: MYCOPHENOLATE MOFETIL
     Indication: Product used for unknown indication
     Route: 065
  9. PREGABALIN [Suspect]
     Active Substance: PREGABALIN
     Indication: Product used for unknown indication
     Route: 065
  10. NEOMYCIN [Suspect]
     Active Substance: NEOMYCIN
     Indication: Product used for unknown indication
     Route: 065
  11. TOFACITINIB CITRATE [Suspect]
     Active Substance: TOFACITINIB CITRATE
     Indication: Psoriatic arthropathy
     Dosage: 5.0 MILLIGRAM, 1 EVERY 1 WEEKS
     Route: 048
  12. TOFACITINIB CITRATE [Suspect]
     Active Substance: TOFACITINIB CITRATE
     Indication: Rheumatoid arthritis
  13. NAPROXEN SODIUM [Suspect]
     Active Substance: NAPROXEN\NAPROXEN SODIUM
     Indication: Rheumatoid arthritis
     Dosage: 500.0 MILLIGRAM, 2 EVERY 1 DAYS
     Route: 065
  14. NAPROXEN SODIUM [Suspect]
     Active Substance: NAPROXEN\NAPROXEN SODIUM
     Dosage: 500 MILLIGRAM
     Route: 065
  15. NAPROXEN SODIUM [Suspect]
     Active Substance: NAPROXEN\NAPROXEN SODIUM
     Dosage: 500.0 MILLIGRAM
     Route: 065
  16. ACTEMRA [Suspect]
     Active Substance: TOCILIZUMAB
     Indication: Rheumatoid arthritis
     Dosage: 752.8 MILLIGRAM
     Route: 042
  17. ACTEMRA [Suspect]
     Active Substance: TOCILIZUMAB
     Dosage: 1.0 DOSAGE FORM
     Route: 042
  18. ACTEMRA [Suspect]
     Active Substance: TOCILIZUMAB
     Dosage: 2912.0 MILLIGRAM
     Route: 042
  19. ACTEMRA [Suspect]
     Active Substance: TOCILIZUMAB
     Dosage: 752.0 MILLIGRAM
     Route: 042
  20. ACTEMRA [Suspect]
     Active Substance: TOCILIZUMAB
     Dosage: 3011.2 MILLIGRAM
     Route: 042
  21. ACTEMRA [Suspect]
     Active Substance: TOCILIZUMAB
     Dosage: 728 MILLIGRAM
     Route: 042
  22. ACTEMRA [Suspect]
     Active Substance: TOCILIZUMAB
     Dosage: 3011 MILLIGRAM
     Route: 042
  23. RITUXIMAB [Suspect]
     Active Substance: RITUXIMAB
     Indication: Rheumatoid arthritis
     Dosage: UNK
     Route: 041
  24. RITUXIMAB [Suspect]
     Active Substance: RITUXIMAB
     Dosage: UNK
     Route: 042
  25. CORTISONE (HYDROCORTISONE) [Suspect]
     Active Substance: HYDROCORTISONE
     Indication: Rheumatoid arthritis
     Dosage: UNK
     Route: 061
  26. CORTISONE (HYDROCORTISONE) [Suspect]
     Active Substance: HYDROCORTISONE
     Dosage: UNK
     Route: 048
  27. CORTISONE (HYDROCORTISONE) [Suspect]
     Active Substance: HYDROCORTISONE
     Dosage: UNK
     Route: 058
  28. CORTISONE (HYDROCORTISONE) [Suspect]
     Active Substance: HYDROCORTISONE
     Dosage: UNK
     Route: 003
  29. DICLOFENAC SODIUM [Suspect]
     Active Substance: DICLOFENAC\DICLOFENAC SODIUM
     Indication: Product used for unknown indication
     Dosage: UNK
     Route: 058
  30. DICLOFENAC SODIUM [Suspect]
     Active Substance: DICLOFENAC\DICLOFENAC SODIUM
     Dosage: UNK
     Route: 048
  31. CALCIUM CARBONATE [Suspect]
     Active Substance: CALCIUM CARBONATE
     Indication: Product used for unknown indication
     Route: 065
  32. REMICADE [Suspect]
     Active Substance: INFLIXIMAB
     Indication: Rheumatoid arthritis
     Dosage: 500.0 MILLIGRAM
     Route: 042
  33. CETIRIZINE HYDROCHLORIDE\PSEUDOEPHEDRINE HYDROCHLORIDE [Suspect]
     Active Substance: CETIRIZINE HYDROCHLORIDE\PSEUDOEPHEDRINE HYDROCHLORIDE
     Indication: Rheumatoid arthritis
     Dosage: 25.0 MILLIGRAM
     Route: 065
  34. CETIRIZINE HYDROCHLORIDE\PSEUDOEPHEDRINE HYDROCHLORIDE [Suspect]
     Active Substance: CETIRIZINE HYDROCHLORIDE\PSEUDOEPHEDRINE HYDROCHLORIDE
     Dosage: 10.0 MILLIGRAM
     Route: 048
  35. SIMPONI [Suspect]
     Active Substance: GOLIMUMAB
     Indication: Psoriatic arthropathy
     Route: 058
  36. SIMPONI [Suspect]
     Active Substance: GOLIMUMAB
     Indication: Rheumatoid arthritis
  37. ACETAMINOPHEN [Suspect]
     Active Substance: ACETAMINOPHEN
     Indication: Rheumatoid arthritis
     Dosage: 10 MILLIGRAM
     Route: 065
  38. XELJANZ [Suspect]
     Active Substance: TOFACITINIB CITRATE
     Indication: Rheumatoid arthritis
     Dosage: 5 MILLIGRAM UNKNOWN
     Route: 065
  39. XELJANZ [Suspect]
     Active Substance: TOFACITINIB CITRATE
     Dosage: 10 MILLIGRAM, 1 EVERY 1 DAY UNKNOWN
     Route: 048
  40. PANTOPRAZOLE [Suspect]
     Active Substance: PANTOPRAZOLE
     Indication: Product used for unknown indication
     Route: 065
  41. CETIRIZINE HYDROCHLORIDE [Suspect]
     Active Substance: CETIRIZINE HYDROCHLORIDE
     Indication: Rheumatoid arthritis
     Dosage: 10.0 MILLIGRAM
     Route: 048
  42. CIMZIA [Suspect]
     Active Substance: CERTOLIZUMAB PEGOL
     Indication: Rheumatoid arthritis
     Dosage: UNK
     Route: 058
  43. FLUMETHASONE PIVALATE [Suspect]
     Active Substance: FLUMETHASONE PIVALATE
     Indication: Rheumatoid arthritis
     Route: 058
  44. TOCILIZUMAB [Suspect]
     Active Substance: TOCILIZUMAB
     Indication: Rheumatoid arthritis
     Route: 058
  45. PSEUDOEPHEDRINE [Suspect]
     Active Substance: PSEUDOEPHEDRINE
     Indication: Product used for unknown indication
     Route: 065
  46. GOLIMUMAB [Suspect]
     Active Substance: GOLIMUMAB
     Indication: Rheumatoid arthritis
     Dosage: UNK
     Route: 058
  47. GOLIMUMAB [Suspect]
     Active Substance: GOLIMUMAB
     Dosage: UNK
     Route: 065
  48. CORTISONE ACETATE [Suspect]
     Active Substance: CORTISONE ACETATE
     Indication: Rheumatoid arthritis
     Dosage: 25 MILLIGRAM
     Route: 065
  49. LEFLUNOMIDE [Suspect]
     Active Substance: LEFLUNOMIDE
     Indication: Rheumatoid arthritis
     Dosage: 20.0 MILLIGRAM
     Route: 048
  50. PREDNISONE [Suspect]
     Active Substance: PREDNISONE
     Indication: Rheumatoid arthritis
     Dosage: 40.0 MILLIGRAM
     Route: 048
  51. PREDNISONE [Suspect]
     Active Substance: PREDNISONE
     Indication: Condition aggravated
     Dosage: 10.0 MILLIGRAM
     Route: 048
  52. PREDNISONE [Suspect]
     Active Substance: PREDNISONE
     Indication: Psoriatic arthropathy
     Dosage: 5.0 MILLIGRAM
     Route: 065
  53. PREDNISONE [Suspect]
     Active Substance: PREDNISONE
     Dosage: 1.0 MILLIGRAM
     Route: 065
  54. PREDNISONE [Suspect]
     Active Substance: PREDNISONE
     Dosage: UNK
     Route: 042
  55. PREDNISONE [Suspect]
     Active Substance: PREDNISONE
     Dosage: 7.5 MILLIGRAM
     Route: 048
  56. CELECOXIB [Suspect]
     Active Substance: CELECOXIB
     Indication: Product used for unknown indication
     Dosage: 1.0 DOSAGE FORM, 1 EVERY 1 DAYS
     Route: 065
  57. VITAMIN D3 [Suspect]
     Active Substance: CHOLECALCIFEROL
     Indication: Product used for unknown indication
     Route: 065
  58. SULFAMETHOXAZOLE [Suspect]
     Active Substance: SULFAMETHOXAZOLE
     Indication: Product used for unknown indication
     Route: 065
  59. STELARA [Suspect]
     Active Substance: USTEKINUMAB
     Indication: Product used for unknown indication
     Dosage: UNK
     Route: 042
  60. STELARA [Suspect]
     Active Substance: USTEKINUMAB
     Dosage: 45.0 MILLIGRAM
     Route: 058
  61. CETIRIZINE HYDROCHLORIDE\PSEUDOEPHEDRINE HYDROCHLORIDE [Suspect]
     Active Substance: CETIRIZINE HYDROCHLORIDE\PSEUDOEPHEDRINE HYDROCHLORIDE
     Indication: Rheumatoid arthritis
     Route: 065
  62. SULFASALAZINE [Suspect]
     Active Substance: SULFASALAZINE
     Indication: Rheumatoid arthritis
     Dosage: 1000 MILLIGRAM
     Route: 048
  63. SULFASALAZINE [Suspect]
     Active Substance: SULFASALAZINE
     Dosage: 1.0 GRAM, 2 EVERY 1 DAYS
     Route: 065
  64. SULFASALAZINE [Suspect]
     Active Substance: SULFASALAZINE
     Dosage: 1.0 GRAM (EVERY 12 HOURS)
     Route: 065
  65. SULFASALAZINE [Suspect]
     Active Substance: SULFASALAZINE
     Dosage: 1000.0 MILLIGRAM, 2 EVERY 1 DAYS
     Route: 048
  66. SULFASALAZINE [Suspect]
     Active Substance: SULFASALAZINE
     Dosage: 1 GRAM
     Route: 048
  67. SULFASALAZINE [Suspect]
     Active Substance: SULFASALAZINE
     Dosage: 500.0 MILLIGRAM
     Route: 048
  68. CORTISONE (HYDROCORTISONE) [Suspect]
     Active Substance: HYDROCORTISONE
     Indication: Rheumatoid arthritis
     Dosage: UNK
     Route: 058
  69. CORTISONE (HYDROCORTISONE) [Suspect]
     Active Substance: HYDROCORTISONE
     Dosage: UNK
     Route: 003
  70. CORTISONE (HYDROCORTISONE) [Suspect]
     Active Substance: HYDROCORTISONE
     Dosage: UNK
     Route: 048
  71. OXYCODONE TEREPHTHALATE [Suspect]
     Active Substance: OXYCODONE TEREPHTHALATE
     Indication: Product used for unknown indication
     Dosage: INTRACARDIAC
     Route: 016
  72. OXYCODONE TEREPHTHALATE [Suspect]
     Active Substance: OXYCODONE TEREPHTHALATE
     Dosage: UNK
     Route: 065
  73. USTEKINUMAB [Suspect]
     Active Substance: USTEKINUMAB
     Indication: Psoriatic arthropathy
     Dosage: 45.0 MILLIGRAM
     Route: 058
  74. USTEKINUMAB [Suspect]
     Active Substance: USTEKINUMAB
     Dosage: 45.0 MILLIGRAM
     Route: 042
  75. ENBREL [Suspect]
     Active Substance: ETANERCEPT
     Indication: Psoriatic arthropathy
     Dosage: 50.0 MILLIGRAM, 1/WEEK
     Route: 058
  76. ENBREL [Suspect]
     Active Substance: ETANERCEPT
     Indication: Rheumatoid arthritis
     Dosage: 20.0 MILLIGRAM, 1/WEEK
     Route: 058
  77. ENBREL [Suspect]
     Active Substance: ETANERCEPT
     Dosage: 50.0 MILLIGRAM
     Route: 058
  78. ENBREL [Suspect]
     Active Substance: ETANERCEPT
     Dosage: 20 MILLIGRAM, 1/WEEK
     Route: 058
  79. DICLOFENAC POTASSIUM [Suspect]
     Active Substance: DICLOFENAC POTASSIUM
     Indication: Product used for unknown indication
     Dosage: UNK
     Route: 048
  80. DICLOFENAC POTASSIUM [Suspect]
     Active Substance: DICLOFENAC POTASSIUM
     Dosage: UNK
     Route: 048
  81. PSEUDOEPHEDRINE HYDROCHLORIDE [Suspect]
     Active Substance: PSEUDOEPHEDRINE HYDROCHLORIDE
     Indication: Rheumatoid arthritis
     Dosage: 10.0 MILLIGRAM
     Route: 065
  82. PSEUDOEPHEDRINE HYDROCHLORIDE [Suspect]
     Active Substance: PSEUDOEPHEDRINE HYDROCHLORIDE
     Dosage: 25.0 MILLIGRAM
     Route: 065
  83. ERELZI [Suspect]
     Active Substance: ETANERCEPT-SZZS
     Indication: Rheumatoid arthritis
     Dosage: 50.0 MILLIGRAM, 1 EVERY 1 WEEKS
     Route: 058
  84. ERELZI [Suspect]
     Active Substance: ETANERCEPT-SZZS
     Dosage: UNK
     Route: 065
  85. PREDNISONE [Suspect]
     Active Substance: PREDNISONE
     Indication: Rheumatoid arthritis
     Dosage: ORAL
     Route: 048
  86. OTEZLA [Suspect]
     Active Substance: APREMILAST
     Indication: Product used for unknown indication
     Dosage: 3 MILLIGRAM
     Route: 048
  87. OTEZLA [Suspect]
     Active Substance: APREMILAST
     Dosage: 3.0 MILLIGRAM, 2 EVERY 1 DAYS
     Route: 048
  88. ALENDRONIC ACID [Suspect]
     Active Substance: ALENDRONIC ACID
     Indication: Rheumatoid arthritis
     Dosage: 1.0 MILLIGRAM
     Route: 048
  89. ALENDRONIC ACID [Suspect]
     Active Substance: ALENDRONIC ACID
     Dosage: 1.0 MILLIGRAM
     Route: 048
  90. HYDROCORTISONE SODIUM SUCCINATE [Suspect]
     Active Substance: HYDROCORTISONE SODIUM SUCCINATE
     Indication: Rheumatoid arthritis
     Dosage: UNK
     Route: 048
  91. HYDROCORTISONE SODIUM SUCCINATE [Suspect]
     Active Substance: HYDROCORTISONE SODIUM SUCCINATE
     Dosage: 25.0 MILLIGRAM
     Route: 065
  92. APREMILAST [Suspect]
     Active Substance: APREMILAST
     Indication: Product used for unknown indication
     Dosage: 3.0 MILLIGRAM
     Route: 065
  93. APREPITANT [Suspect]
     Active Substance: APREPITANT
     Indication: Product used for unknown indication
     Route: 042
  94. CORTISONE (HYDROCORTISONE) [Suspect]
     Active Substance: HYDROCORTISONE
     Indication: Rheumatoid arthritis
     Dosage: UNK
     Route: 048
  95. CORTISONE (HYDROCORTISONE) [Suspect]
     Active Substance: HYDROCORTISONE
     Dosage: UNK
     Route: 003
  96. ORENCIA [Suspect]
     Active Substance: ABATACEPT
     Indication: Rheumatoid arthritis
     Dosage: UNK
     Route: 042
  97. ORENCIA [Suspect]
     Active Substance: ABATACEPT
     Dosage: 125 MILLIGRAM, SUBCUTANEOUS
     Route: 058
  98. ORENCIA [Suspect]
     Active Substance: ABATACEPT
     Dosage: UNK
     Route: 058
  99. ORENCIA [Suspect]
     Active Substance: ABATACEPT
     Dosage: 125 MILLIGRAM, SUBCUTANEOUS
     Route: 058
  100. ISOPROPYL ALCOHOL [Suspect]
     Active Substance: ISOPROPYL ALCOHOL
     Indication: Product used for unknown indication
     Dosage: UNK
     Route: 061
  101. PHTHALYLSULFATHIAZOLE [Suspect]
     Active Substance: PHTHALYLSULFATHIAZOLE
     Indication: Rheumatoid arthritis
     Dosage: 500.0 MILLIGRAM
     Route: 048
  102. PHTHALYLSULFATHIAZOLE [Suspect]
     Active Substance: PHTHALYLSULFATHIAZOLE
     Dosage: UNK
     Route: 016
  103. PHTHALYLSULFATHIAZOLE [Suspect]
     Active Substance: PHTHALYLSULFATHIAZOLE
     Dosage: 1000.0 MILLIGRAM, 2 EVERY 1 DAYS
     Route: 048
  104. PHTHALYLSULFATHIAZOLE [Suspect]
     Active Substance: PHTHALYLSULFATHIAZOLE
     Dosage: 2000.0 MILLIGRAM
     Route: 048
  105. PHTHALYLSULFATHIAZOLE [Suspect]
     Active Substance: PHTHALYLSULFATHIAZOLE
     Dosage: UNK
     Route: 042
  106. PHTHALYLSULFATHIAZOLE [Suspect]
     Active Substance: PHTHALYLSULFATHIAZOLE
     Dosage: 1000 UNK
     Route: 048
  107. PHTHALYLSULFATHIAZOLE [Suspect]
     Active Substance: PHTHALYLSULFATHIAZOLE
     Dosage: 400.0 MILLIGRAM
     Route: 065
  108. OXYCODONE HYDROCHLORIDE [Suspect]
     Active Substance: OXYCODONE HYDROCHLORIDE
     Indication: Product used for unknown indication
     Route: 065
  109. DOXYCYCLINE [Suspect]
     Active Substance: DOXYCYCLINE
     Indication: Product used for unknown indication
     Dosage: 40.0 MILLIGRAM
     Route: 065
  110. TRAMADOL HYDROCHLORIDE [Suspect]
     Active Substance: TRAMADOL HYDROCHLORIDE
     Indication: Product used for unknown indication
     Route: 065
  111. HUMIRA [Suspect]
     Active Substance: ADALIMUMAB
     Indication: Psoriatic arthropathy
     Dosage: SUBCUTANEOUS
     Route: 058
  112. HUMIRA [Suspect]
     Active Substance: ADALIMUMAB
     Indication: Rheumatoid arthritis
  113. HYDROXYCHLOROQUINE SULFATE [Suspect]
     Active Substance: HYDROXYCHLOROQUINE SULFATE
     Indication: Systemic lupus erythematosus
     Dosage: 4000.0 MILLIGRAM, 1 EVERY 1 DAYS
     Route: 058
  114. HYDROXYCHLOROQUINE SULFATE [Suspect]
     Active Substance: HYDROXYCHLOROQUINE SULFATE
     Indication: Rheumatoid arthritis
     Dosage: 5.0 MILLIGRAM
     Route: 048
  115. HYDROXYCHLOROQUINE SULFATE [Suspect]
     Active Substance: HYDROXYCHLOROQUINE SULFATE
     Dosage: 40 MILLIGRAM, 1 EVERY 1 DAYS
     Route: 065
  116. CELEBREX [Suspect]
     Active Substance: CELECOXIB
     Indication: Product used for unknown indication
     Dosage: 2.0 DOSAGE FORM, 1 EVERY 1 DAYS
     Route: 048
  117. CERTOLIZUMAB PEGOL [Suspect]
     Active Substance: CERTOLIZUMAB PEGOL
     Indication: Product used for unknown indication
     Route: 065
  118. ORENCIA [Suspect]
     Active Substance: ABATACEPT
     Indication: Rheumatoid arthritis
     Dosage: UNK
     Route: 058
  119. ORENCIA [Suspect]
     Active Substance: ABATACEPT
     Dosage: UNK
     Route: 042
  120. ORENCIA [Suspect]
     Active Substance: ABATACEPT
     Dosage: 125.0 MILLIGRAM
     Route: 058
  121. ORENCIA [Suspect]
     Active Substance: ABATACEPT
     Dosage: UNK
     Route: 041
  122. ORENCIA [Suspect]
     Active Substance: ABATACEPT
     Dosage: UNK
     Route: 058
  123. ORENCIA [Suspect]
     Active Substance: ABATACEPT
     Dosage: 5.0 MILLIGRAM
     Route: 065
  124. LYRICA [Suspect]
     Active Substance: PREGABALIN
     Indication: Product used for unknown indication
     Route: 065
  125. COSENTYX [Suspect]
     Active Substance: SECUKINUMAB
     Indication: Rheumatoid arthritis
     Route: 005
  126. COSENTYX [Suspect]
     Active Substance: SECUKINUMAB
     Indication: Psoriatic arthropathy
  127. PREDNISONE [Suspect]
     Active Substance: PREDNISONE
     Indication: Rheumatoid arthritis
     Dosage: 1.0 MILLIGRAM
     Route: 065
  128. PREDNISONE [Suspect]
     Active Substance: PREDNISONE
     Dosage: 5.0 MILLIGRAM
     Route: 048
  129. VITAMIN C [Suspect]
     Active Substance: ASCORBIC ACID
     Indication: Product used for unknown indication
     Dosage: UNK
     Route: 065
  130. VITAMIN C [Suspect]
     Active Substance: ASCORBIC ACID
     Dosage: INTRACARDIAC
     Route: 016
  131. CHLORAPREP [Suspect]
     Active Substance: CHLORHEXIDINE GLUCONATE\ISOPROPYL ALCOHOL
     Indication: Product used for unknown indication
     Route: 061
  132. DICLOFENAC DIETHYLAMINE [Suspect]
     Active Substance: DICLOFENAC DIETHYLAMINE
     Indication: Product used for unknown indication
     Route: 065
  133. INFLIXIMAB [Suspect]
     Active Substance: INFLIXIMAB
     Indication: Rheumatoid arthritis
     Dosage: 500.0 MILLIGRAM
     Route: 042
  134. CALCIUM [Suspect]
     Active Substance: CALCIUM
     Indication: Product used for unknown indication
     Route: 065
  135. STELARA [Suspect]
     Active Substance: USTEKINUMAB
     Indication: Product used for unknown indication
     Route: 058
  136. OXYCODONE [Suspect]
     Active Substance: OXYCODONE\OXYCODONE HYDROCHLORIDE
     Indication: Product used for unknown indication
     Route: 065
  137. PREDNISONE [Suspect]
     Active Substance: PREDNISONE
     Indication: Condition aggravated
     Dosage: 5.0 MILLIGRAM
     Route: 065
  138. PREDNISONE [Suspect]
     Active Substance: PREDNISONE
     Indication: Rheumatoid arthritis
  139. PREDNISONE [Suspect]
     Active Substance: PREDNISONE
     Indication: Psoriatic arthropathy
  140. XELJANZ [Suspect]
     Active Substance: TOFACITINIB CITRATE
     Indication: Rheumatoid arthritis
     Dosage: 5 MILLIGRAM
     Route: 065
  141. ARAVA [Suspect]
     Active Substance: LEFLUNOMIDE
     Indication: Rheumatoid arthritis
     Dosage: 20.0 MILLIGRAM, 1 EVERY 1 DAYS
     Route: 048
  142. FOLIC ACID [Suspect]
     Active Substance: FOLIC ACID
     Indication: Rheumatoid arthritis
     Dosage: 1.0 MILLIGRAM
     Route: 058
  143. FOLIC ACID [Suspect]
     Active Substance: FOLIC ACID
     Dosage: 15.0 MILLIGRAM
     Route: 048
  144. FOLIC ACID [Suspect]
     Active Substance: FOLIC ACID
     Dosage: 25.0 MILLIGRAM
     Route: 065
  145. FOLIC ACID [Suspect]
     Active Substance: FOLIC ACID
     Dosage: 3.0 MILLIGRAM
     Route: 065
  146. FOLIC ACID [Suspect]
     Active Substance: FOLIC ACID
     Dosage: 5.0 MILLIGRAM,1 EVERY 1 DAY
     Route: 048
  147. FOLIC ACID [Suspect]
     Active Substance: FOLIC ACID
     Dosage: 0.5 MILLIGRAM
     Route: 065
  148. FOLIC ACID [Suspect]
     Active Substance: FOLIC ACID
     Dosage: 500.0 MILLIGRAM
     Route: 058
  149. CHLORAPREP [Suspect]
     Active Substance: CHLORHEXIDINE GLUCONATE\ISOPROPYL ALCOHOL
     Indication: Product used for unknown indication
     Route: 061
  150. HYDROXYCHLOROQUINE [Suspect]
     Active Substance: HYDROXYCHLOROQUINE
     Indication: Rheumatoid arthritis
     Dosage: 40 MILLIGRAM, 1 EVERY 1 DAYS
  151. HYDROXYCHLOROQUINE [Suspect]
     Active Substance: HYDROXYCHLOROQUINE
     Dosage: 400.0 MILLIGRAM, 1 EVERY 1 DAYS
  152. COSENTYX [Suspect]
     Active Substance: SECUKINUMAB
     Indication: Psoriatic arthropathy
     Route: 005
  153. COSENTYX [Suspect]
     Active Substance: SECUKINUMAB
     Indication: Rheumatoid arthritis
  154. FOLIC ACID [Suspect]
     Active Substance: FOLIC ACID
     Indication: Rheumatoid arthritis
     Route: 065
  155. CIMZIA [Suspect]
     Active Substance: CERTOLIZUMAB PEGOL
     Indication: Rheumatoid arthritis
     Dosage: 200.0 MILLIGRAM
     Route: 058
  156. CIMZIA [Suspect]
     Active Substance: CERTOLIZUMAB PEGOL
     Dosage: 400.0 MILLIGRAM
     Route: 058
  157. CIMZIA [Suspect]
     Active Substance: CERTOLIZUMAB PEGOL
     Dosage: 10.0 MILLIGRAM
     Route: 058
  158. CIMZIA [Suspect]
     Active Substance: CERTOLIZUMAB PEGOL
     Dosage: 1.0 DOSAGE FORM, 1 EVERY 1 DAYS
     Route: 058
  159. ADALIMUMAB [Suspect]
     Active Substance: ADALIMUMAB\ISOPROPYL ALCOHOL
     Indication: Psoriatic arthropathy
     Dosage: 40.0 MILLIGRAM
     Route: 048
  160. ADALIMUMAB [Suspect]
     Active Substance: ADALIMUMAB\ISOPROPYL ALCOHOL
     Dosage: 40.0 MILLIGRAM
     Route: 058
  161. SULFASALAZINE [Suspect]
     Active Substance: SULFASALAZINE
     Indication: Rheumatoid arthritis
     Dosage: 1.0 GRAM, 1 EVERY 1 DAYS
     Route: 048
  162. SIMPONI [Suspect]
     Active Substance: GOLIMUMAB
     Indication: Psoriatic arthropathy
     Dosage: UNK
     Route: 052
  163. SIMPONI [Suspect]
     Active Substance: GOLIMUMAB
     Indication: Rheumatoid arthritis
     Dosage: UNK
     Route: 058
  164. SIMPONI [Suspect]
     Active Substance: GOLIMUMAB
     Dosage: 50.0 MILLIGRAM
     Route: 058
  165. SIMPONI [Suspect]
     Active Substance: GOLIMUMAB
     Dosage: UNK
     Route: 042
  166. FOSAMAX [Suspect]
     Active Substance: ALENDRONATE SODIUM
     Indication: Rheumatoid arthritis
     Dosage: UNK
     Route: 048
  167. HYDROCORTISONE BUTYRATE [Suspect]
     Active Substance: HYDROCORTISONE BUTYRATE
     Indication: Rheumatoid arthritis
     Route: 058
  168. CHLORHEXIDINE GLUCONATE [Suspect]
     Active Substance: CHLORHEXIDINE GLUCONATE
     Indication: Product used for unknown indication
     Dosage: UNK
     Route: 048
  169. CHLORHEXIDINE GLUCONATE [Suspect]
     Active Substance: CHLORHEXIDINE GLUCONATE
     Dosage: UNK
     Route: 002
  170. CHLORHEXIDINE GLUCONATE [Suspect]
     Active Substance: CHLORHEXIDINE GLUCONATE
     Dosage: UNK
     Route: 061
  171. CALCIUM GLUBIONATE [Suspect]
     Active Substance: CALCIUM GLUBIONATE
     Indication: Product used for unknown indication
     Route: 065
  172. LEFLUNOMIDE [Suspect]
     Active Substance: LEFLUNOMIDE
     Indication: Rheumatoid arthritis
     Route: 065
  173. HYDROCORTISONE [Suspect]
     Active Substance: HYDROCORTISONE
     Indication: Rheumatoid arthritis
     Dosage: 25.0 MILLIGRAM
     Route: 065
  174. HYDROCORTISONE [Suspect]
     Active Substance: HYDROCORTISONE
     Dosage: 25.0 MILLIGRAM
     Route: 061
  175. HYDROCORTISONE [Suspect]
     Active Substance: HYDROCORTISONE
     Dosage: UNK
     Route: 003
  176. HYDROCORTISONE [Suspect]
     Active Substance: HYDROCORTISONE
     Dosage: UNK
     Route: 058
  177. HYDROCORTISONE [Suspect]
     Active Substance: HYDROCORTISONE
     Dosage: UNK
     Route: 048
  178. REMICADE [Suspect]
     Active Substance: INFLIXIMAB
     Indication: Rheumatoid arthritis
     Route: 042
  179. HUMIRA [Suspect]
     Active Substance: ADALIMUMAB
     Indication: Rheumatoid arthritis
     Dosage: 400 MILLIGRAM, SUBCUTANEOUS
     Route: 058
  180. HUMIRA [Suspect]
     Active Substance: ADALIMUMAB
     Indication: Psoriatic arthropathy
     Dosage: 40.0 MILLIGRAM
     Route: 058
  181. HUMIRA [Suspect]
     Active Substance: ADALIMUMAB
     Dosage: 400.0 MILLIGRAM
     Route: 058
  182. HUMIRA [Suspect]
     Active Substance: ADALIMUMAB
     Dosage: 4.0 MILLIGRAM
     Route: 058
  183. HUMIRA [Suspect]
     Active Substance: ADALIMUMAB
     Dosage: UNK
     Route: 065
  184. HUMIRA [Suspect]
     Active Substance: ADALIMUMAB
     Dosage: 40 UNK
     Route: 058
  185. HUMIRA [Suspect]
     Active Substance: ADALIMUMAB
     Dosage: 40.0 MILLIGRAM
     Route: 058
  186. TRIAMCINOLONE ACETONIDE [Suspect]
     Active Substance: TRIAMCINOLONE ACETONIDE
     Indication: Rheumatoid arthritis
     Route: 014
  187. DICLOFENAC SODIUM [Suspect]
     Active Substance: DICLOFENAC\DICLOFENAC SODIUM
     Indication: Product used for unknown indication
     Dosage: UNK
     Route: 058
  188. DICLOFENAC SODIUM [Suspect]
     Active Substance: DICLOFENAC\DICLOFENAC SODIUM
     Dosage: 50 MILLIGRAM, QD
     Route: 047
  189. DICLOFENAC SODIUM [Suspect]
     Active Substance: DICLOFENAC\DICLOFENAC SODIUM
     Dosage: 100 MILLIGRAM
     Route: 065
  190. DICLOFENAC SODIUM [Suspect]
     Active Substance: DICLOFENAC\DICLOFENAC SODIUM
     Dosage: UNK
     Route: 058
  191. DICLOFENAC SODIUM [Suspect]
     Active Substance: DICLOFENAC\DICLOFENAC SODIUM
     Indication: Product used for unknown indication
     Dosage: 50 MILLIGRAM, QD
     Route: 058
  192. CETIRIZINE [Suspect]
     Active Substance: CETIRIZINE HYDROCHLORIDE
     Indication: Rheumatoid arthritis
     Dosage: 25.0 MILLIGRAM
     Route: 048
  193. CETIRIZINE [Suspect]
     Active Substance: CETIRIZINE HYDROCHLORIDE
     Dosage: 10.0 MILLIGRAM
     Route: 048
  194. CORTISONE ACETATE [Suspect]
     Active Substance: CORTISONE ACETATE
     Indication: Rheumatoid arthritis
     Dosage: UNK
     Route: 048
  195. CORTISONE ACETATE [Suspect]
     Active Substance: CORTISONE ACETATE
     Dosage: 25 MILLIGRAM
     Route: 061
  196. CORTISONE ACETATE [Suspect]
     Active Substance: CORTISONE ACETATE
     Dosage: 25 MILLIGRAM
     Route: 048
  197. CORTISONE ACETATE [Suspect]
     Active Substance: CORTISONE ACETATE
     Dosage: 25 MILLIGRAM, CUTANEOUS
     Route: 003
  198. CORTISONE ACETATE [Suspect]
     Active Substance: CORTISONE ACETATE
     Dosage: 25 MILLIGRAM
     Route: 048
  199. CORTISONE ACETATE [Suspect]
     Active Substance: CORTISONE ACETATE
     Dosage: 25 MILLIGRAM, SUBCUTANEOUS
     Route: 058
  200. SULFAMETHOXAZOLE AND TRIMETHOPRIM [Suspect]
     Active Substance: SULFAMETHOXAZOLE\TRIMETHOPRIM
     Indication: Product used for unknown indication
     Route: 065
  201. SULFASALAZINE [Suspect]
     Active Substance: SULFASALAZINE
     Indication: Rheumatoid arthritis
     Dosage: 2 GRAM, GASTRO-RESISTANT TABLET
     Route: 048
  202. SULFASALAZINE [Suspect]
     Active Substance: SULFASALAZINE
     Dosage: 2000 MG, GASTRO-RESISTANT TABLET
     Route: 048
  203. SULFASALAZINE [Suspect]
     Active Substance: SULFASALAZINE
     Dosage: 1000 MILLIGRAM, GASTRO-RESISTANT TABLET
     Route: 048
  204. SULFASALAZINE [Suspect]
     Active Substance: SULFASALAZINE
     Dosage: 1 GRAM, GASTRO-RESISTANT TABLET
     Route: 048
  205. SULFASALAZINE [Suspect]
     Active Substance: SULFASALAZINE
     Dosage: 4000 MG, GASTRO-RESISTANT TABLET
     Route: 048
  206. SULFASALAZINE [Suspect]
     Active Substance: SULFASALAZINE
     Dosage: 1 GRAM, GASTRO-RESISTANT TABLET
     Route: 048
  207. SULFASALAZINE [Suspect]
     Active Substance: SULFASALAZINE
     Dosage: 500 MG, GASTRO-RESISTANT TABLET
     Route: 058
  208. SULFASALAZINE [Suspect]
     Active Substance: SULFASALAZINE
     Dosage: 1000 MILLIGRAM, GASTRO-RESISTANT TABLET
     Route: 048
  209. SULFASALAZINE [Suspect]
     Active Substance: SULFASALAZINE
     Dosage: 500 MG, GASTRO-RESISTANT TABLET
     Route: 048
  210. SULFASALAZINE [Suspect]
     Active Substance: SULFASALAZINE
     Dosage: 4000 MG, GASTRO-RESISTANT TABLET
     Route: 048
  211. SULFASALAZINE [Suspect]
     Active Substance: SULFASALAZINE
     Dosage: 2000 MG, GASTRO-RESISTANT TABLET
     Route: 048
  212. SULFASALAZINE [Suspect]
     Active Substance: SULFASALAZINE
     Dosage: 1 GRAM, GASTRO-RESISTANT TABLET  2 EVERY 1 DAYS
     Route: 048
  213. SULFASALAZINE [Suspect]
     Active Substance: SULFASALAZINE
     Dosage: 2000 MG, GASTRO-RESISTANT TABLET
     Route: 048
  214. SULFASALAZINE [Suspect]
     Active Substance: SULFASALAZINE
     Dosage: 2 GRAM, GASTRO-RESISTANT TABLET
     Route: 048
  215. SULFASALAZINE [Suspect]
     Active Substance: SULFASALAZINE
     Dosage: 1 GRAM, GASTRO-RESISTANT TABLET
     Route: 048
  216. SULFASALAZINE [Suspect]
     Active Substance: SULFASALAZINE
     Indication: Rheumatoid arthritis
     Dosage: 1000 MILLIGRAM
     Route: 048
  217. DESOXIMETASONE [Suspect]
     Active Substance: DESOXIMETASONE
     Indication: Rheumatoid arthritis
     Dosage: UNK
     Route: 048
  218. DESOXIMETASONE [Suspect]
     Active Substance: DESOXIMETASONE
     Dosage: 25 MILLIGRAM
     Route: 048
  219. DESOXIMETASONE [Suspect]
     Active Substance: DESOXIMETASONE
     Dosage: UNK
     Route: 058
  220. DESOXIMETASONE [Suspect]
     Active Substance: DESOXIMETASONE
     Dosage: 25 MILLIGRAM, 1/WEEK
     Route: 048
  221. DESOXIMETASONE [Suspect]
     Active Substance: DESOXIMETASONE
     Dosage: UNK
     Route: 048
  222. DESOXIMETASONE [Suspect]
     Active Substance: DESOXIMETASONE
     Dosage: 25 MILLIGRAM
     Route: 065
  223. DESOXIMETASONE [Suspect]
     Active Substance: DESOXIMETASONE
     Dosage: UNK
     Route: 003
  224. DESOXIMETASONE [Suspect]
     Active Substance: DESOXIMETASONE
     Dosage: UNK
     Route: 065
  225. DESOXIMETASONE [Suspect]
     Active Substance: DESOXIMETASONE
     Dosage: 25 MILLIGRAM
     Route: 003
  226. DESOXIMETASONE [Suspect]
     Active Substance: DESOXIMETASONE
     Dosage: UNK
     Route: 042
  227. DESOXIMETASONE [Suspect]
     Active Substance: DESOXIMETASONE
     Dosage: UNK
     Route: 061
  228. DESOXIMETASONE [Suspect]
     Active Substance: DESOXIMETASONE
     Dosage: 1 EVERY 1 WEEK
     Route: 048
  229. DESOXIMETASONE [Suspect]
     Active Substance: DESOXIMETASONE
     Dosage: 5 MILLIGRAM
     Route: 048
  230. DESOXIMETASONE [Suspect]
     Active Substance: DESOXIMETASONE
     Dosage: 1 EVERY 1 WEEKS
     Route: 058
  231. DESOXIMETASONE [Suspect]
     Active Substance: DESOXIMETASONE
     Dosage: 25 MILLIGRAM
     Route: 003
  232. DESOXIMETASONE [Suspect]
     Active Substance: DESOXIMETASONE
     Indication: Rheumatoid arthritis
     Dosage: 25 MILLIGRAM
     Route: 061
  233. DESOXIMETASONE [Suspect]
     Active Substance: DESOXIMETASONE
     Dosage: UNK
     Route: 048
  234. DESOXIMETASONE [Suspect]
     Active Substance: DESOXIMETASONE
     Dosage: 25 MILLIGRAM
     Route: 065
  235. DESOXIMETASONE [Suspect]
     Active Substance: DESOXIMETASONE
     Dosage: 25 MILLIGRAM
     Route: 061
  236. DESOXIMETASONE [Suspect]
     Active Substance: DESOXIMETASONE
     Dosage: UNK
     Route: 003
  237. DESOXIMETASONE [Suspect]
     Active Substance: DESOXIMETASONE
     Dosage: UNK
     Route: 058
  238. DESOXIMETASONE [Suspect]
     Active Substance: DESOXIMETASONE
     Indication: Rheumatoid arthritis
     Route: 048
  239. CETIRIZINE [Suspect]
     Active Substance: CETIRIZINE HYDROCHLORIDE
     Indication: Rheumatoid arthritis
     Dosage: 10 MILLIGRAM, QD
     Route: 048
  240. CETIRIZINE [Suspect]
     Active Substance: CETIRIZINE HYDROCHLORIDE
     Dosage: 25 MILLIGRAM
     Route: 048
  241. ISOPROPYL ALCOHOL [Suspect]
     Active Substance: ISOPROPYL ALCOHOL
     Indication: Product used for unknown indication
     Route: 061
  242. METHOTREXATE [Suspect]
     Active Substance: METHOTREXATE
     Indication: Rheumatoid arthritis
     Dosage: UNK
     Route: 013
  243. METHOTREXATE [Suspect]
     Active Substance: METHOTREXATE
     Dosage: UNK
     Route: 013
  244. METHOTREXATE [Suspect]
     Active Substance: METHOTREXATE
     Dosage: 1 DOSAGE FORM
     Route: 048
  245. METHOTREXATE [Suspect]
     Active Substance: METHOTREXATE
     Dosage: 20 MILLIGRAM, 1 EVERY 1 WEEKS
     Route: 058
  246. METHOTREXATE [Suspect]
     Active Substance: METHOTREXATE
     Dosage: 20.0 MILLIGRAM, 1 EVERY 1 DAYS
     Route: 048
  247. METHOTREXATE [Suspect]
     Active Substance: METHOTREXATE
     Dosage: 500 MILLIGRAM, BID
     Route: 065
  248. METHOTREXATE [Suspect]
     Active Substance: METHOTREXATE
     Dosage: 25 MILLIGRAM, 1 EVERY 1 WEEKS
     Route: 058
  249. METHOTREXATE [Suspect]
     Active Substance: METHOTREXATE
     Dosage: 15 MILLIGRAM
     Route: 048
  250. METHOTREXATE [Suspect]
     Active Substance: METHOTREXATE
     Dosage: 225 MILLIGRAM, ORAL
     Route: 048
  251. METHOTREXATE [Suspect]
     Active Substance: METHOTREXATE
     Dosage: 2.0 GRAM, 1 EVERY 1 DAYS
     Route: 048
  252. METHOTREXATE [Suspect]
     Active Substance: METHOTREXATE
     Dosage: 500 MILLIGRAM 2 EVERY 1 DAYS
     Route: 065
  253. CETIRIZINE [Suspect]
     Active Substance: CETIRIZINE HYDROCHLORIDE
     Dosage: 10.0 MILLIGRAM, 1 EVERY 1 DAYS
     Route: 048
  254. CETIRIZINE [Suspect]
     Active Substance: CETIRIZINE HYDROCHLORIDE
     Dosage: 10.0 MILLIGRAM
     Route: 048
  255. CETIRIZINE [Suspect]
     Active Substance: CETIRIZINE HYDROCHLORIDE
     Dosage: 10.0 MILLIGRAM
     Route: 065
  256. APREPITANT [Suspect]
     Active Substance: APREPITANT
     Indication: Product used for unknown indication
     Dosage: 5 MILLIGRAM
     Route: 048
  257. APREPITANT [Suspect]
     Active Substance: APREPITANT
     Dosage: 3 MILLIGRAM
     Route: 065

REACTIONS (93)
  - Wheezing [Fatal]
  - Rash [Fatal]
  - Swelling [Fatal]
  - Dry mouth [Fatal]
  - Sinusitis [Fatal]
  - Malaise [Fatal]
  - Irritable bowel syndrome [Fatal]
  - Joint range of motion decreased [Fatal]
  - Systemic lupus erythematosus [Fatal]
  - Type 2 diabetes mellitus [Fatal]
  - Urticaria [Fatal]
  - Injury [Fatal]
  - Pruritus [Fatal]
  - Swollen joint count increased [Fatal]
  - Duodenal ulcer perforation [Fatal]
  - Facet joint syndrome [Fatal]
  - Lip dry [Fatal]
  - Rheumatoid arthritis [Fatal]
  - Synovitis [Fatal]
  - Road traffic accident [Fatal]
  - Stomatitis [Fatal]
  - Pyrexia [Fatal]
  - C-reactive protein [Fatal]
  - Hypoaesthesia [Fatal]
  - Psoriatic arthropathy [Fatal]
  - Hypersensitivity [Fatal]
  - Insomnia [Fatal]
  - Rheumatoid factor positive [Fatal]
  - Inflammation [Fatal]
  - Vomiting [Fatal]
  - Wound [Fatal]
  - Liver disorder [Fatal]
  - Folliculitis [Fatal]
  - Impaired healing [Fatal]
  - Sleep disorder [Fatal]
  - Rheumatic fever [Fatal]
  - Joint swelling [Fatal]
  - Helicobacter infection [Fatal]
  - Sleep disorder due to general medical condition, insomnia type [Fatal]
  - Ill-defined disorder [Fatal]
  - Sciatica [Fatal]
  - Infection [Fatal]
  - Hepatic enzyme increased [Fatal]
  - Infusion related reaction [Fatal]
  - Fibromyalgia [Fatal]
  - Mobility decreased [Fatal]
  - Fatigue [Fatal]
  - Hand deformity [Fatal]
  - General physical health deterioration [Fatal]
  - Weight increased [Fatal]
  - Hypertension [Fatal]
  - Glossodynia [Fatal]
  - Night sweats [Fatal]
  - Maternal exposure during pregnancy [Fatal]
  - Pain [Fatal]
  - Musculoskeletal stiffness [Fatal]
  - Liver injury [Fatal]
  - Abdominal discomfort [Fatal]
  - Discomfort [Fatal]
  - Lung disorder [Fatal]
  - Headache [Fatal]
  - C-reactive protein abnormal [Fatal]
  - Asthma [Fatal]
  - Osteoarthritis [Fatal]
  - Off label use [Fatal]
  - Asthenia [Fatal]
  - Nasopharyngitis [Fatal]
  - Blood cholesterol increased [Fatal]
  - Lower limb fracture [Fatal]
  - Gait inability [Fatal]
  - Autoimmune disorder [Fatal]
  - Chest pain [Fatal]
  - Muscle injury [Fatal]
  - Gastrointestinal disorder [Fatal]
  - Hip arthroplasty [Fatal]
  - Contusion [Fatal]
  - Deep vein thrombosis postoperative [Fatal]
  - Diarrhoea [Fatal]
  - Confusional state [Fatal]
  - Drug hypersensitivity [Fatal]
  - Live birth [Fatal]
  - Abdominal pain upper [Fatal]
  - Pericarditis [Fatal]
  - Lower respiratory tract infection [Fatal]
  - Anxiety [Fatal]
  - Anti-cyclic citrullinated peptide antibody positive [Fatal]
  - Arthralgia [Fatal]
  - Arthropathy [Fatal]
  - Decreased appetite [Fatal]
  - Pemphigus [Fatal]
  - Blister [Fatal]
  - Peripheral swelling [Fatal]
  - Musculoskeletal pain [Fatal]
